FAERS Safety Report 4311831-0 (Version None)
Quarter: 2004Q1

REPORT INFORMATION
  Report Type: 
  Country: None (occurrence: None)
  Receive Date: 20040304
  Receipt Date: 20040219
  Transmission Date: 20041129
  Serious: Yes (Other)
  Sender: FDA-Public Use
  Company Number: WAES 0402USA01500

PATIENT
  Sex: Male

DRUGS (2)
  1. EPIPEN [Concomitant]
     Dates: start: 20040214, end: 20040214
  2. VIOXX [Suspect]
     Route: 048

REACTIONS (5)
  - ANGIONEUROTIC OEDEMA [None]
  - DRUG HYPERSENSITIVITY [None]
  - MYOCARDIAL ISCHAEMIA [None]
  - TACHYCARDIA [None]
  - TROPONIN INCREASED [None]
